FAERS Safety Report 19849991 (Version 1)
Quarter: 2021Q3

REPORT INFORMATION
  Report Type: Report from Study
  Country: IL (occurrence: IL)
  Receive Date: 20210918
  Receipt Date: 20210918
  Transmission Date: 20211014
  Serious: Yes (Hospitalization, Other)
  Sender: FDA-Public Use
  Company Number: IL-AMGEN-ISRSL2021032890

PATIENT
  Age: 89 Year
  Sex: Female

DRUGS (4)
  1. NPLATE [Suspect]
     Active Substance: ROMIPLOSTIM
     Dosage: 240 MICROGRAM, QWK
     Route: 058
  2. NPLATE [Suspect]
     Active Substance: ROMIPLOSTIM
     Indication: IMMUNE THROMBOCYTOPENIA
     Dosage: 240 MICROGRAM, QWK
     Route: 058
     Dates: start: 20200712
  3. SOMATULIN [Concomitant]
     Active Substance: LANREOTIDE ACETATE
     Dosage: UNK
  4. NPLATE [Suspect]
     Active Substance: ROMIPLOSTIM
     Dosage: 240 MICROGRAM, QWK
     Route: 058

REACTIONS (7)
  - Cardiac failure [Not Recovered/Not Resolved]
  - Atrial fibrillation [Not Recovered/Not Resolved]
  - Platelet count decreased [Unknown]
  - Unevaluable event [Unknown]
  - Pulmonary congestion [Not Recovered/Not Resolved]
  - Haemoglobin decreased [Not Recovered/Not Resolved]
  - Asthenia [Unknown]

NARRATIVE: CASE EVENT DATE: 20210407
